FAERS Safety Report 10654525 (Version 1)
Quarter: 2014Q4

REPORT INFORMATION
  Report Type: Spontaneous
  Country: JP (occurrence: None)
  Receive Date: 20141212
  Receipt Date: 20141212
  Transmission Date: 20150529
  Serious: Yes (Other)
  Sender: FDA-Public Use
  Company Number: JP2014JPN032263

PATIENT
  Sex: Male

DRUGS (3)
  1. LOXONIN (LOXOPROFEN SODIUM) [Concomitant]
     Active Substance: LOXOPROFEN SODIUM
  2. ZEFIX [Suspect]
     Active Substance: LAMIVUDINE
     Route: 048
  3. HEPSERA [Suspect]
     Active Substance: ADEFOVIR DIPIVOXIL
     Route: 048

REACTIONS (3)
  - Drug prescribing error [None]
  - Renal impairment [None]
  - Headache [None]
